FAERS Safety Report 18817308 (Version 3)
Quarter: 2021Q1

REPORT INFORMATION
  Report Type: Other
  Country: TR (occurrence: TR)
  Receive Date: 20210201
  Receipt Date: 20210209
  Transmission Date: 20210419
  Serious: No
  Sender: FDA-Public Use
  Company Number: TR-ROCHE-2760345

PATIENT
  Age: 57 Year
  Sex: Female
  Weight: 68 kg

DRUGS (15)
  1. COLCHICUM [Concomitant]
     Active Substance: COLCHICINE
     Indication: PERICARDITIS
     Route: 048
     Dates: start: 20190129
  2. METHYLPREDNISOLONE. [Concomitant]
     Active Substance: METHYLPREDNISOLONE
     Indication: PREMEDICATION
     Dosage: ONCE BEFORE INFUSION
     Route: 042
     Dates: start: 20181210, end: 20181210
  3. OCRELIZUMAB. [Suspect]
     Active Substance: OCRELIZUMAB
     Route: 042
     Dates: start: 20200122, end: 20200122
  4. OCRELIZUMAB. [Suspect]
     Active Substance: OCRELIZUMAB
     Route: 042
     Dates: start: 20200724, end: 20200724
  5. AVIL [Concomitant]
     Active Substance: PHENIRAMINE
     Route: 042
     Dates: start: 20181227, end: 20181227
  6. AVIL [Concomitant]
     Active Substance: PHENIRAMINE
     Dosage: ONCE BEFORE INFUSION?NEXT DOSE RECEIVED ON 22/JAN/2020 AND 24/JUL/2020
     Route: 042
     Dates: start: 20190718, end: 20190718
  7. METHYLPREDNISOLONE. [Concomitant]
     Active Substance: METHYLPREDNISOLONE
     Dosage: NEXT DOSE RECEIVED ON 22/JAN/2020 AND 24/JUL/2020
     Route: 042
     Dates: start: 20190718, end: 20190718
  8. PANTOPRAZOLE [Concomitant]
     Active Substance: PANTOPRAZOLE
     Dosage: ONCE BEFORE INFUSION
     Route: 042
     Dates: start: 20181227, end: 20181227
  9. PANTOPRAZOLE [Concomitant]
     Active Substance: PANTOPRAZOLE
     Indication: PREMEDICATION
     Dosage: ONCE BEFORE INFUSION
     Route: 042
     Dates: start: 20181210, end: 20181210
  10. PANTOPRAZOLE [Concomitant]
     Active Substance: PANTOPRAZOLE
     Dosage: NEXT DOSE WAS RECEIVED ON 22/JAN/2020 AND 24/JUL/2020
     Route: 042
     Dates: start: 20190718, end: 20190718
  11. OCRELIZUMAB. [Suspect]
     Active Substance: OCRELIZUMAB
     Route: 042
     Dates: start: 20181227, end: 20181227
  12. OCRELIZUMAB. [Suspect]
     Active Substance: OCRELIZUMAB
     Route: 042
     Dates: start: 20190718, end: 20190718
  13. AVIL [Concomitant]
     Active Substance: PHENIRAMINE
     Indication: PREMEDICATION
     Dosage: ONCE BEFORE INFUSION
     Route: 042
     Dates: start: 20181210, end: 20181210
  14. METHYLPREDNISOLONE. [Concomitant]
     Active Substance: METHYLPREDNISOLONE
     Route: 042
     Dates: start: 20181227, end: 20181227
  15. OCRELIZUMAB. [Suspect]
     Active Substance: OCRELIZUMAB
     Indication: MULTIPLE SCLEROSIS
     Route: 042
     Dates: start: 20181210, end: 20181210

REACTIONS (1)
  - COVID-19 [Recovering/Resolving]

NARRATIVE: CASE EVENT DATE: 20210119
